FAERS Safety Report 7572774-2 (Version None)
Quarter: 2011Q2

REPORT INFORMATION
  Report Type: 
  Country: None (occurrence: None)
  Receive Date: 20110525
  Receipt Date: 20110216
  Transmission Date: 20111010
  Serious: Yes (Hospitalization)
  Sender: FDA-Public Use
  Company Number: 323499

PATIENT
  Age: 53 Year
  Sex: Male
  Weight: 135.1 kg

DRUGS (7)
  1. ASPIRIN [Concomitant]
  2. VIT D (ERGOCALCIFEROL) [Concomitant]
  3. MULTI-VIT (VITAMINS NOS) [Concomitant]
  4. LISINOPRIL [Concomitant]
  5. ZOCOR [Concomitant]
  6. VICTOZA [Suspect]
     Indication: TYPE 2 DIABETES MELLITUS
     Dosage: SUBCUTANEOUS
     Route: 058
     Dates: start: 20100723, end: 20110214
  7. ACTOS [Concomitant]

REACTIONS (1)
  - PANCREATITIS [None]
